FAERS Safety Report 8818321 (Version 1)
Quarter: 2012Q4

REPORT INFORMATION
  Report Type: 
  Country: US (occurrence: US)
  Receive Date: 20121001
  Receipt Date: 20121001
  Transmission Date: 20130627
  Serious: No
  Sender: FDA-Public Use
  Company Number: US-SANOFI-AVENTIS-2012SA008497

PATIENT

DRUGS (1)
  1. ELIGARD [Suspect]
     Route: 065

REACTIONS (2)
  - Drug ineffective [Unknown]
  - Product quality issue [Unknown]
